FAERS Safety Report 25347075 (Version 1)
Quarter: 2025Q2

REPORT INFORMATION
  Report Type: Spontaneous
  Country: US (occurrence: US)
  Receive Date: 20250522
  Receipt Date: 20250522
  Transmission Date: 20250717
  Serious: No
  Sender: GALDERMA
  Company Number: US-GALDERMA-US2025005347

PATIENT

DRUGS (1)
  1. DIFFERIN GEL [Suspect]
     Active Substance: ADAPALENE
     Indication: Product used for unknown indication
     Route: 061

REACTIONS (5)
  - Periorbital swelling [Recovering/Resolving]
  - Skin swelling [Recovering/Resolving]
  - Rash [Recovering/Resolving]
  - Perioral dermatitis [Recovering/Resolving]
  - Hypersensitivity [Recovering/Resolving]
